FAERS Safety Report 23565953 (Version 1)
Quarter: 2024Q1

REPORT INFORMATION
  Report Type: Spontaneous
  Country: US (occurrence: None)
  Receive Date: 20240225
  Receipt Date: 20240225
  Transmission Date: 20240410
  Serious: Yes (Disabling)
  Sender: FDA-Public Use
  Company Number: None

PATIENT
  Age: 18 Month
  Sex: Female
  Weight: 18 kg

DRUGS (1)
  1. MIRALAX [Suspect]
     Active Substance: POLYETHYLENE GLYCOL 3350
     Indication: Constipation
     Dates: start: 20180223, end: 20210726

REACTIONS (7)
  - Anger [None]
  - Crying [None]
  - Behaviour disorder [None]
  - Blood brain barrier defect [None]
  - Learning disorder [None]
  - Speech disorder developmental [None]
  - Anxiety [None]

NARRATIVE: CASE EVENT DATE: 20190825
